FAERS Safety Report 16801186 (Version 1)
Quarter: 2019Q3

REPORT INFORMATION
  Report Type: Report from Study
  Country: GB (occurrence: GB)
  Receive Date: 20190912
  Receipt Date: 20190912
  Transmission Date: 20191005
  Serious: Yes (Hospitalization, Other)
  Sender: FDA-Public Use
  Company Number: PHHY2019GB162805

PATIENT
  Sex: Female

DRUGS (1)
  1. COSENTYX [Suspect]
     Active Substance: SECUKINUMAB
     Indication: PSORIATIC ARTHROPATHY
     Dosage: 300 MG, QMO (PRE-FILLED PEN)
     Route: 058
     Dates: start: 20190409

REACTIONS (9)
  - Pain in extremity [Unknown]
  - Mobility decreased [Unknown]
  - Contusion [Unknown]
  - Pain [Unknown]
  - Parkinson^s disease [Not Recovered/Not Resolved]
  - Malaise [Unknown]
  - Osteoporosis [Unknown]
  - Injection site pain [Unknown]
  - Peripheral swelling [Unknown]
